FAERS Safety Report 5772533-7 (Version None)
Quarter: 2008Q2

REPORT INFORMATION
  Report Type: 
  Country: None (occurrence: None)
  Receive Date: 20080613
  Receipt Date: 20080604
  Transmission Date: 20081010
  Serious: Yes (Hospitalization, Other)
  Sender: FDA-Public Use
  Company Number: US-AMGEN-QUU255423

PATIENT
  Sex: Female
  Weight: 65.4 kg

DRUGS (11)
  1. ENBREL [Suspect]
     Indication: RHEUMATOID ARTHRITIS
     Route: 058
     Dates: start: 20040624, end: 20080226
  2. VOLTAREN [Suspect]
  3. NICARDIPINE HCL [Concomitant]
     Route: 048
  4. LASIX [Concomitant]
     Route: 048
  5. SINGULAIR [Concomitant]
  6. ZETIA [Concomitant]
  7. ZOCOR [Concomitant]
     Route: 048
  8. ZOLOFT [Concomitant]
  9. BUSPAR [Concomitant]
  10. DARVOCET-N 100 [Concomitant]
  11. PRILOSEC [Concomitant]
     Route: 048

REACTIONS (11)
  - CELLULITIS [None]
  - CHRONIC OBSTRUCTIVE PULMONARY DISEASE [None]
  - COLITIS [None]
  - CONSTIPATION [None]
  - FATIGUE [None]
  - FOOT DEFORMITY [None]
  - MUSCULOSKELETAL STIFFNESS [None]
  - OEDEMA PERIPHERAL [None]
  - OESOPHAGEAL CANDIDIASIS [None]
  - SALIVARY GLAND NEOPLASM [None]
  - UPPER RESPIRATORY TRACT INFECTION [None]
